FAERS Safety Report 9089787 (Version 1)
Quarter: 2013Q1

REPORT INFORMATION
  Report Type: Spontaneous
  Country: US (occurrence: US)
  Receive Date: 20130218
  Receipt Date: 20130218
  Transmission Date: 20140127
  Serious: No
  Sender: FDA-Public Use
  Company Number: US-009507513-1302USA005717

PATIENT
  Sex: Male

DRUGS (6)
  1. PEGINTRON [Suspect]
     Indication: HEPATITIS C
     Dosage: UNK
     Dates: start: 20070323, end: 20071231
  2. PEGINTRON [Suspect]
     Dosage: UNK
     Dates: start: 20080201, end: 20081130
  3. PEGINTRON [Suspect]
     Dosage: UNK
     Dates: start: 20090107, end: 20090131
  4. RIBAVIRIN [Suspect]
     Indication: HEPATITIS C
     Dosage: UNK
     Dates: start: 20070323, end: 20071231
  5. RIBAVIRIN [Suspect]
     Dosage: UNK
     Dates: start: 20080201, end: 20081130
  6. RIBAVIRIN [Suspect]
     Dosage: UNK
     Dates: start: 20090107, end: 20090131

REACTIONS (6)
  - Drug ineffective [Unknown]
  - Therapeutic response decreased [Unknown]
  - Drug ineffective [Unknown]
  - Therapeutic response decreased [Unknown]
  - Drug ineffective [Unknown]
  - Therapeutic response decreased [Unknown]
